FAERS Safety Report 9643090 (Version 1)
Quarter: 2013Q4

REPORT INFORMATION
  Report Type: Spontaneous
  Country: US (occurrence: None)
  Receive Date: 20131023
  Receipt Date: 20131023
  Transmission Date: 20140711
  Serious: Yes (Other)
  Sender: FDA-Public Use
  Company Number: None

PATIENT
  Age: 52 Year
  Sex: Female
  Weight: 58.51 kg

DRUGS (1)
  1. SUBOXONE [Suspect]
     Indication: DRUG DEPENDENCE
     Dosage: 1 FILM, TWICE DAILY, UNDER TONGUE
     Dates: start: 20131001

REACTIONS (12)
  - Feeling abnormal [None]
  - Malaise [None]
  - Vomiting [None]
  - Abdominal pain upper [None]
  - Dehydration [None]
  - Constipation [None]
  - Lethargy [None]
  - Oral mucosal blistering [None]
  - Anger [None]
  - Overdose [None]
  - Suicidal ideation [None]
  - Aggression [None]
